FAERS Safety Report 5167672-8 (Version None)
Quarter: 2006Q4

REPORT INFORMATION
  Report Type: 
  Country: None (occurrence: None)
  Receive Date: 20061201
  Receipt Date: 20061201
  Transmission Date: 20070319
  Serious: Yes (Hospitalization)
  Sender: FDA-Public Use
  Company Number: None

PATIENT
  Age: 67 Year
  Sex: Male
  Weight: 67 kg

DRUGS (11)
  1. XELODA [Suspect]
     Indication: COLON CANCER METASTATIC
     Dosage: PO
     Route: 048
     Dates: start: 20060912, end: 20061006
  2. AVASTIN [Suspect]
     Indication: COLON CANCER METASTATIC
     Dosage: IV
     Route: 042
     Dates: start: 20060912, end: 20061006
  3. ZOFRAN [Concomitant]
  4. COMPAZINE [Concomitant]
  5. IMODIUM [Concomitant]
  6. MEGACE [Concomitant]
  7. LIPITOR [Concomitant]
  8. NORVASC [Concomitant]
  9. GLUCOSAMINE [Concomitant]
  10. OCUVITE [Concomitant]
  11. LOMOTIL [Concomitant]

REACTIONS (8)
  - ABDOMINAL PAIN [None]
  - BACTERIA STOOL IDENTIFIED [None]
  - DEHYDRATION [None]
  - DIARRHOEA [None]
  - INTESTINAL OBSTRUCTION [None]
  - NAUSEA [None]
  - ORAL INTAKE REDUCED [None]
  - VOMITING [None]
